FAERS Safety Report 15776588 (Version 1)
Quarter: 2018Q4

REPORT INFORMATION
  Report Type: Spontaneous
  Country: US (occurrence: US)
  Receive Date: 20181210
  Receipt Date: 20181210
  Transmission Date: 20190205
  Serious: Yes (Death)
  Sender: FDA-Public Use
  Company Number: None

PATIENT
  Sex: Female

DRUGS (1)
  1. EQUATE ANTI DIARRHEAL [Suspect]
     Active Substance: LOPERAMIDE HYDROCHLORIDE
     Indication: OVERDOSE

REACTIONS (4)
  - Overdose [None]
  - Product use issue [None]
  - Seizure [None]
  - Product formulation issue [None]

NARRATIVE: CASE EVENT DATE: 20181205
